FAERS Safety Report 10010973 (Version 1)
Quarter: 2014Q1

REPORT INFORMATION
  Report Type: Spontaneous
  Country: FR (occurrence: FR)
  Receive Date: 20140314
  Receipt Date: 20140314
  Transmission Date: 20141002
  Serious: Yes (Other)
  Sender: FDA-Public Use
  Company Number: FR-ENDO PHARMACEUTICALS INC.-FRVA20140011

PATIENT
  Age: 34 Year
  Sex: Female

DRUGS (1)
  1. FROVA TABLETS 2.5MG [Suspect]
     Indication: MIGRAINE
     Route: 048
     Dates: start: 20090224

REACTIONS (2)
  - Abortion spontaneous [Recovered/Resolved]
  - Exposure during pregnancy [Recovered/Resolved]
